FAERS Safety Report 10181631 (Version 2)
Quarter: 2014Q2

REPORT INFORMATION
  Report Type: Spontaneous
  Country: US (occurrence: US)
  Receive Date: 20140519
  Receipt Date: 20140523
  Transmission Date: 20141212
  Serious: Yes (Other)
  Sender: FDA-Public Use
  Company Number: US-ABBVIE-14P-163-1237733-00

PATIENT
  Age: 61 Year
  Sex: Male
  Weight: 122.58 kg

DRUGS (13)
  1. ANDROGEL [Suspect]
     Indication: BLOOD TESTOSTERONE DECREASED
     Dosage: 2 PUMPS
     Route: 061
     Dates: start: 201308, end: 201311
  2. ANDROGEL [Suspect]
     Dosage: 3 PUMPS
     Route: 061
     Dates: start: 201311
  3. UNKNOWN MEDICATIONS [Concomitant]
     Indication: PRODUCT USED FOR UNKNOWN INDICATION
     Dosage: 8 - 10 UNKNOWN MEDICATIONS
  4. NORVASC [Concomitant]
     Indication: PRODUCT USED FOR UNKNOWN INDICATION
  5. ASPIRIN [Concomitant]
     Indication: PRODUCT USED FOR UNKNOWN INDICATION
  6. LIPITOR [Concomitant]
     Indication: PRODUCT USED FOR UNKNOWN INDICATION
  7. CATAPRES [Concomitant]
     Indication: PRODUCT USED FOR UNKNOWN INDICATION
  8. COENZYME Q10 [Concomitant]
     Indication: PRODUCT USED FOR UNKNOWN INDICATION
  9. LASIX [Concomitant]
     Indication: PRODUCT USED FOR UNKNOWN INDICATION
  10. HYZAAR [Concomitant]
     Indication: PRODUCT USED FOR UNKNOWN INDICATION
  11. TOPROL [Concomitant]
     Indication: PRODUCT USED FOR UNKNOWN INDICATION
  12. MICRO-K [Concomitant]
     Indication: PRODUCT USED FOR UNKNOWN INDICATION
  13. CIALIS [Concomitant]
     Indication: PRODUCT USED FOR UNKNOWN INDICATION

REACTIONS (10)
  - Cardiac disorder [Not Recovered/Not Resolved]
  - Electrocardiogram T wave inversion [Unknown]
  - Ventricular extrasystoles [Unknown]
  - Myocardial infarction [Unknown]
  - Palpitations [Unknown]
  - Heart rate irregular [Not Recovered/Not Resolved]
  - Nausea [Recovered/Resolved]
  - Fatigue [Recovered/Resolved]
  - Asthenia [Recovered/Resolved]
  - Libido decreased [Recovered/Resolved]
